FAERS Safety Report 8394989-6 (Version None)
Quarter: 2012Q2

REPORT INFORMATION
  Report Type: 
  Country: None (occurrence: None)
  Receive Date: 20120530
  Receipt Date: 20120518
  Transmission Date: 20120825
  Serious: Yes (Hospitalization, Other)
  Sender: FDA-Public Use
  Company Number: GB-ELI_LILLY_AND_COMPANY-GB201205006403

PATIENT
  Age: 46 Year
  Sex: Female
  Weight: 64.5 kg

DRUGS (15)
  1. FERROUS SULFATE TAB [Concomitant]
     Dosage: UNK
     Dates: start: 20120416
  2. NITROGLYCERIN [Concomitant]
     Dosage: UNK
     Dates: start: 20120116, end: 20120425
  3. CODEINE PHOSPHATE [Concomitant]
     Dosage: UNK
     Dates: start: 20120423, end: 20120505
  4. ZOPICLONE [Concomitant]
     Dosage: UNK
     Dates: start: 20120130, end: 20120307
  5. CALCIUM CARBONATE [Concomitant]
     Dosage: UNK
     Dates: start: 20111125
  6. CLOPIDOGREL [Concomitant]
     Dosage: UNK
     Dates: start: 20111125
  7. EICOSAPENTAENOIC ACID [Concomitant]
     Dosage: UNK
     Dates: start: 20120210
  8. TRAMADOL HCL [Concomitant]
     Dosage: UNK
     Dates: start: 20120319, end: 20120504
  9. ATORVASTATIN CALCIUM [Concomitant]
     Dosage: UNK
     Dates: start: 20120210
  10. LANSOPRAZOLE [Concomitant]
     Dosage: UNK
     Dates: start: 20120410, end: 20120424
  11. ASPIRIN [Concomitant]
     Dosage: UNK
     Dates: start: 20120210
  12. ACETAMINOPHEN [Concomitant]
     Dosage: UNK
     Dates: start: 20111125
  13. CYMBALTA [Suspect]
     Dosage: UNK, UNKNOWN
     Dates: start: 20120430
  14. BISOPROLOL FUMARATE [Concomitant]
     Dosage: UNK
     Dates: start: 20120111, end: 20120416
  15. IBUPROFEN [Concomitant]
     Dosage: UNK
     Dates: start: 20120210, end: 20120309

REACTIONS (3)
  - MALAISE [None]
  - SEROTONIN SYNDROME [None]
  - CHEST PAIN [None]
